FAERS Safety Report 24651138 (Version 2)
Quarter: 2025Q1

REPORT INFORMATION
  Report Type: Report from Study
  Country: US (occurrence: US)
  Receive Date: 20241122
  Receipt Date: 20250206
  Transmission Date: 20250408
  Serious: Yes (Other)
  Sender: UCB
  Company Number: US-UCBSA-2024060082

PATIENT
  Age: 4 Year
  Sex: Male
  Weight: 23.8 kg

DRUGS (25)
  1. FINTEPLA [Suspect]
     Active Substance: FENFLURAMINE
     Indication: Lennox-Gastaut syndrome
     Dates: start: 20220224
  2. FINTEPLA [Suspect]
     Active Substance: FENFLURAMINE
     Dosage: 2.6 MILLILITER, 2X/DAY (BID)
  3. BRIVIACT [Concomitant]
     Active Substance: BRIVARACETAM
     Indication: Product used for unknown indication
  4. VIMPAT [Concomitant]
     Active Substance: LACOSAMIDE
     Indication: Product used for unknown indication
     Dosage: 4 MILLILITER, 2X/DAY (BID)
  5. TYLENOL [Concomitant]
     Active Substance: ACETAMINOPHEN
     Indication: Product used for unknown indication
  6. PROVENTIL [Concomitant]
     Active Substance: ALBUTEROL
     Indication: Wheezing
  7. PROVENTIL [Concomitant]
     Active Substance: ALBUTEROL
     Indication: Dyspnoea
  8. ATROPINE SULFATE [Concomitant]
     Active Substance: ATROPINE SULFATE
     Indication: Secretion discharge
  9. FLEQSUVY [Concomitant]
     Active Substance: BACLOFEN
     Indication: Product used for unknown indication
     Dosage: 10 MILLIGRAM, 3X/DAY (TID)
  10. PULMICORT TURBUHALER [Concomitant]
     Active Substance: BUDESONIDE
     Indication: Product used for unknown indication
  11. EPIDIOLEX [Concomitant]
     Active Substance: CANNABIDIOL
     Indication: Product used for unknown indication
     Dosage: 1.8 MILLILITER, 2X/DAY (BID)
  12. CHOLECALCIFEROL [Concomitant]
     Active Substance: CHOLECALCIFEROL
     Indication: Product used for unknown indication
  13. KLONOPIN [Concomitant]
     Active Substance: CLONAZEPAM
     Indication: Dystonia
  14. KLONOPIN [Concomitant]
     Active Substance: CLONAZEPAM
     Indication: Irritability
  15. DIASTAT [Concomitant]
     Active Substance: DIAZEPAM
     Indication: Seizure
  16. FLONASE ALLERGY RELIEF [Concomitant]
     Active Substance: FLUTICASONE PROPIONATE
     Indication: Product used for unknown indication
  17. GLYCERIN [Concomitant]
     Active Substance: GLYCERIN
     Indication: Constipation
  18. ROBINUL [Concomitant]
     Active Substance: GLYCOPYRROLATE
     Indication: Product used for unknown indication
     Dosage: 0.5 MILLIGRAM, 3X/DAY (TID)
  19. ATROVENT [Concomitant]
     Active Substance: IPRATROPIUM BROMIDE
     Indication: Wheezing
     Dosage: 2.5 MILLILITER, 3X/DAY (TID)
     Route: 045
  20. ATROVENT [Concomitant]
     Active Substance: IPRATROPIUM BROMIDE
     Indication: Dyspnoea
  21. BACTROBAN [Concomitant]
     Active Substance: MUPIROCIN CALCIUM
     Indication: Product used for unknown indication
  22. PRILOSEC [Concomitant]
     Active Substance: OMEPRAZOLE MAGNESIUM
     Indication: Product used for unknown indication
     Dosage: 20 MILLIGRAM, ONCE DAILY (QD)
  23. ZOFRAN [Concomitant]
     Active Substance: ONDANSETRON HYDROCHLORIDE
     Indication: Product used for unknown indication
  24. MIRALAX [Concomitant]
     Active Substance: POLYETHYLENE GLYCOL 3350
     Indication: Product used for unknown indication
  25. SODIUM CHLORIDE [Concomitant]
     Active Substance: SODIUM CHLORIDE
     Indication: Product used for unknown indication

REACTIONS (1)
  - Mitral valve incompetence [Unknown]

NARRATIVE: CASE EVENT DATE: 20240422
